FAERS Safety Report 17882976 (Version 2)
Quarter: 2020Q3

REPORT INFORMATION
  Report Type: Spontaneous
  Country: US (occurrence: US)
  Receive Date: 20200611
  Receipt Date: 20200702
  Transmission Date: 20201103
  Serious: No
  Sender: FDA-Public Use
  Company Number: US-AMGEN INC.-USASP2020087959

PATIENT
  Age: 69 Year
  Sex: Female

DRUGS (4)
  1. AIMOVIG [Suspect]
     Active Substance: ERENUMAB-AOOE
     Indication: MIGRAINE
     Dosage: 70 MILLIGRAM, QMO
     Route: 065
     Dates: start: 2019
  2. IMITREX [Concomitant]
     Active Substance: SUMATRIPTAN SUCCINATE
     Indication: MIGRAINE
     Dosage: 100 MILLIGRAM AND 50 MG SINCE 01/JUN/2020
     Route: 065
  3. LIDOCAINE. [Concomitant]
     Active Substance: LIDOCAINE
     Dosage: UNK
     Dates: end: 2020
  4. AIMOVIG [Suspect]
     Active Substance: ERENUMAB-AOOE
     Dosage: 140 MILLIGRAM, QMO
     Route: 065
     Dates: start: 20200518

REACTIONS (10)
  - Road traffic accident [Unknown]
  - Inappropriate schedule of product administration [Unknown]
  - Muscle spasms [Not Recovered/Not Resolved]
  - Nerve compression [Not Recovered/Not Resolved]
  - Injection site reaction [Unknown]
  - Adverse event [Unknown]
  - Arthralgia [Not Recovered/Not Resolved]
  - Sensitivity to weather change [Unknown]
  - Therapeutic product effect decreased [Unknown]
  - Migraine [Unknown]

NARRATIVE: CASE EVENT DATE: 2019
